FAERS Safety Report 8144822-2 (Version None)
Quarter: 2012Q1

REPORT INFORMATION
  Report Type: 
  Country: None (occurrence: None)
  Receive Date: 20120214
  Receipt Date: 20120131
  Transmission Date: 20120608
  Serious: Yes (Other)
  Sender: FDA-Public Use
  Company Number: HA12-022-AE

PATIENT
  Age: 28 Year
  Sex: Female
  Weight: 59.8748 kg

DRUGS (1)
  1. SULFAMETHOXAZOLE AND TRIMETHOPRIM [Suspect]
     Indication: ACNE
     Dosage: 1 TABLETS, BID, ORAL
     Route: 048
     Dates: start: 20111101, end: 20111201

REACTIONS (5)
  - OCCULT BLOOD [None]
  - TOOTH DISCOLOURATION [None]
  - BLOOD POTASSIUM DECREASED [None]
  - ASPARTATE AMINOTRANSFERASE INCREASED [None]
  - GINGIVAL DISCOLOURATION [None]
